FAERS Safety Report 17415921 (Version 1)
Quarter: 2020Q1

REPORT INFORMATION
  Report Type: Spontaneous
  Country: US (occurrence: US)
  Receive Date: 20200213
  Receipt Date: 20200213
  Transmission Date: 20200409
  Serious: No
  Sender: FDA-Public Use
  Company Number: US-SUNOVION-2020SUN000464

PATIENT
  Age: 19 Year
  Sex: Male

DRUGS (2)
  1. LATUDA [Suspect]
     Active Substance: LURASIDONE HYDROCHLORIDE
     Dosage: 20 MG, QD
     Route: 048
  2. LITHIUM. [Concomitant]
     Active Substance: LITHIUM
     Dosage: UNK
     Route: 065

REACTIONS (2)
  - Weight increased [Unknown]
  - Attention deficit/hyperactivity disorder [Unknown]
